FAERS Safety Report 17361638 (Version 2)
Quarter: 2020Q3

REPORT INFORMATION
  Report Type: Spontaneous
  Country: US (occurrence: US)
  Receive Date: 20200203
  Receipt Date: 20200923
  Transmission Date: 20201102
  Serious: No
  Sender: FDA-Public Use
  Company Number: US-PFIZER INC-2020043935

PATIENT
  Age: 64 Year
  Sex: Female

DRUGS (2)
  1. IBRANCE [Suspect]
     Active Substance: PALBOCICLIB
     Dosage: 100 MG, CYCLIC (100 MG X 21 DAYS Q 28 DAYS PO (ORAL) QD (ONCE DAILY))
     Route: 048
  2. IBRANCE [Suspect]
     Active Substance: PALBOCICLIB
     Indication: BREAST CANCER FEMALE
     Dosage: 125 MG, CYCLIC (125MG X QD X 21 DAYS Q 28 DAYS)
     Route: 048
     Dates: start: 20180724

REACTIONS (7)
  - Fatigue [Not Recovered/Not Resolved]
  - Hair texture abnormal [Unknown]
  - Lymphoedema [Unknown]
  - Asthenia [Unknown]
  - Depression [Unknown]
  - Diarrhoea [Unknown]
  - Illness [Unknown]

NARRATIVE: CASE EVENT DATE: 20200814
